FAERS Safety Report 4626490-7 (Version None)
Quarter: 2005Q1

REPORT INFORMATION
  Report Type: 
  Country: None (occurrence: None)
  Receive Date: 20050330
  Receipt Date: 20050315
  Transmission Date: 20050727
  Serious: Yes (Other)
  Sender: FDA-Public Use
  Company Number: US_0411108201

PATIENT
  Age: 74 Year
  Sex: Male
  Weight: 79 kg

DRUGS (6)
  1. FORTEO [Suspect]
     Indication: OSTEOPOROSIS
     Dosage: 20 UG/1 DAY
     Dates: start: 20041110
  2. CALTRATE 600 PLUS VITAMIN D [Concomitant]
  3. ZOLADEX [Concomitant]
  4. FOSAMAX [Concomitant]
  5. COREG [Concomitant]
  6. LASIX [Concomitant]

REACTIONS (15)
  - ABDOMINAL HAEMATOMA [None]
  - BLOOD CALCIUM INCREASED [None]
  - BONE LESION [None]
  - CALCINOSIS [None]
  - CARDIAC DISORDER [None]
  - CONSTIPATION [None]
  - CONTUSION [None]
  - FATIGUE [None]
  - FEAR [None]
  - MEDICAL DEVICE COMPLICATION [None]
  - MITRAL VALVE DISEASE [None]
  - PENILE HAEMORRHAGE [None]
  - PHARMACEUTICAL PRODUCT COMPLAINT [None]
  - PROSTATE CANCER METASTATIC [None]
  - SOMNOLENCE [None]
